FAERS Safety Report 13630287 (Version 1)
Quarter: 2017Q2

REPORT INFORMATION
  Report Type: Spontaneous
  Country: US (occurrence: US)
  Receive Date: 20170531
  Receipt Date: 20170531
  Transmission Date: 20170830
  Serious: No
  Sender: FDA-Public Use
  Company Number: US-ASTELLAS-1292847

PATIENT
  Age: 56 Year
  Sex: Female

DRUGS (5)
  1. PROCHLORPERAZINE MALEATE. [Concomitant]
     Active Substance: PROCHLORPERAZINE MALEATE
  2. TARCEVA [Suspect]
     Active Substance: ERLOTINIB HYDROCHLORIDE
     Indication: LUNG NEOPLASM MALIGNANT
     Dosage: FREQUENCY-DAILY.
     Route: 065
     Dates: start: 20131007, end: 20131015
  3. SOTALOL. [Concomitant]
     Active Substance: SOTALOL
  4. HCTZ [Concomitant]
     Active Substance: HYDROCHLOROTHIAZIDE
  5. FOLIC ACID. [Concomitant]
     Active Substance: FOLIC ACID

REACTIONS (5)
  - Rash [Recovered/Resolved]
  - Diarrhoea [Recovered/Resolved]
  - Proctalgia [Recovered/Resolved]
  - Abdominal pain upper [Recovered/Resolved]
  - White blood cell count decreased [Unknown]

NARRATIVE: CASE EVENT DATE: 20131014
